FAERS Safety Report 5796405-7 (Version None)
Quarter: 2008Q2

REPORT INFORMATION
  Report Type: 
  Country: None (occurrence: None)
  Receive Date: 20080630
  Receipt Date: 20080630
  Transmission Date: 20081010
  Serious: No
  Sender: FDA-Public Use
  Company Number: None

PATIENT
  Sex: Female
  Weight: 72.5755 kg

DRUGS (2)
  1. KETEK [Suspect]
     Indication: SINUSITIS
     Dosage: 800MG 1XD
     Dates: start: 20060216, end: 20060220
  2. KETEK [Suspect]
     Indication: SINUSITIS
     Dosage: 800MG 1XD
     Dates: start: 20060508, end: 20060512

REACTIONS (1)
  - AUTOIMMUNE HEPATITIS [None]
